FAERS Safety Report 7505269-2 (Version None)
Quarter: 2011Q2

REPORT INFORMATION
  Report Type: 
  Country: None (occurrence: None)
  Receive Date: 20110526
  Receipt Date: 20110511
  Transmission Date: 20111010
  Serious: Yes (Hospitalization)
  Sender: FDA-Public Use
  Company Number: US-BAYER-201037449NA

PATIENT
  Age: 19 Year
  Sex: Female
  Weight: 66 kg

DRUGS (4)
  1. PREDNISONE [Concomitant]
  2. AMOXI-TABLINEN [Concomitant]
     Dosage: 500-125 MG, UNK
  3. YAZ [Suspect]
     Indication: CONTRACEPTION
     Dosage: UNK
     Dates: start: 20081208, end: 20090601
  4. ORTHO TRI-CYCLEN LO [Suspect]
     Dosage: UNK UNK, PRN (SEASONALE)
     Dates: start: 20090527, end: 20090801

REACTIONS (5)
  - CHOLELITHIASIS [None]
  - ABDOMINAL PAIN [None]
  - HEADACHE [None]
  - PAIN [None]
  - NAUSEA [None]
